FAERS Safety Report 16572541 (Version 1)
Quarter: 2019Q3

REPORT INFORMATION
  Report Type: Spontaneous
  Country: US (occurrence: US)
  Receive Date: 20190531
  Receipt Date: 20190531
  Transmission Date: 20191004
  Serious: Yes (Hospitalization)
  Sender: FDA-Public Use
  Company Number: None

PATIENT
  Age: 72 Year
  Sex: Male
  Weight: 77 kg

DRUGS (4)
  1. WARFARIN [Suspect]
     Active Substance: WARFARIN
     Indication: PROTEIN C DEFICIENCY
     Dates: start: 20040101, end: 20181107
  2. WARFARIN [Suspect]
     Active Substance: WARFARIN
     Indication: DEEP VEIN THROMBOSIS
     Dates: start: 20040101, end: 20181107
  3. WARFARIN [Suspect]
     Active Substance: WARFARIN
     Indication: PULMONARY EMBOLISM
     Dates: start: 20040101, end: 20181107
  4. WARFARIN [Suspect]
     Active Substance: WARFARIN
     Indication: PROTEIN S DEFICIENCY
     Dates: start: 20040101, end: 20181107

REACTIONS (9)
  - Anticoagulation drug level above therapeutic [None]
  - Erythema [None]
  - Swelling [None]
  - Haemoglobin decreased [None]
  - White blood cell count increased [None]
  - Sepsis [None]
  - Blood lactic acid increased [None]
  - Pyrexia [None]
  - Graft haemorrhage [None]

NARRATIVE: CASE EVENT DATE: 20181107
